FAERS Safety Report 8394949-5 (Version None)
Quarter: 2012Q2

REPORT INFORMATION
  Report Type: 
  Country: None (occurrence: None)
  Receive Date: 20120530
  Receipt Date: 20111101
  Transmission Date: 20120825
  Serious: No
  Sender: FDA-Public Use
  Company Number: US-GLAXOSMITHKLINE-A0952364A

PATIENT
  Age: 54 Year
  Sex: Female

DRUGS (6)
  1. WELLBUTRIN [Concomitant]
  2. TRACLEER [Concomitant]
  3. DIGOXIN [Concomitant]
  4. COUMADIN [Concomitant]
  5. FLOLAN [Suspect]
     Indication: PRODUCT USED FOR UNKNOWN INDICATION
     Route: 042
     Dates: start: 20071101
  6. XANAX [Concomitant]

REACTIONS (1)
  - MEDICAL DEVICE COMPLICATION [None]
